FAERS Safety Report 13997264 (Version 1)
Quarter: 2017Q3

REPORT INFORMATION
  Report Type: Spontaneous
  Country: US (occurrence: US)
  Receive Date: 20170921
  Receipt Date: 20170921
  Transmission Date: 20171128
  Serious: Yes (Death, Hospitalization, Other)
  Sender: FDA-Public Use
  Company Number: US-ELI_LILLY_AND_COMPANY-US201709006995

PATIENT
  Sex: Female

DRUGS (2)
  1. DOXORUBICIN [Concomitant]
     Active Substance: DOXORUBICIN
     Indication: SOFT TISSUE SARCOMA
     Dosage: UNK, UNKNOWN
     Route: 065
  2. LARTRUVO [Suspect]
     Active Substance: OLARATUMAB
     Indication: SOFT TISSUE SARCOMA
     Dosage: UNK, UNKNOWN
     Route: 065
     Dates: start: 201705

REACTIONS (2)
  - Asthenia [Unknown]
  - Pneumonia [Fatal]
